FAERS Safety Report 4426894-1 (Version None)
Quarter: 2004Q3

REPORT INFORMATION
  Report Type: 
  Country: None (occurrence: None)
  Receive Date: 20040811
  Receipt Date: 20040721
  Transmission Date: 20050211
  Serious: Yes (Life-Threatening, Hospitalization)
  Sender: FDA-Public Use
  Company Number: 2004-FF-00441FF

PATIENT
  Age: 39 Year
  Sex: Male

DRUGS (4)
  1. VIRAMUNE [Suspect]
     Indication: HIV INFECTION
     Dosage: 400 MG (200 MG)  PO
     Route: 048
     Dates: start: 20040301, end: 20040317
  2. OXACILLIN [Suspect]
     Dosage: PO
     Route: 048
     Dates: start: 20040311, end: 20040315
  3. VALPROATE SODIUM [Concomitant]
  4. DEPAKOTE [Concomitant]

REACTIONS (6)
  - EYE DISORDER [None]
  - PHIMOSIS [None]
  - PHOTOPHOBIA [None]
  - RHABDOMYOLYSIS [None]
  - SCAR [None]
  - TOXIC EPIDERMAL NECROLYSIS [None]
